FAERS Safety Report 18911661 (Version 4)
Quarter: 2021Q2

REPORT INFORMATION
  Report Type: Report from Study
  Country: US (occurrence: US)
  Receive Date: 20210218
  Receipt Date: 20210621
  Transmission Date: 20210717
  Serious: Yes (Death, Hospitalization)
  Sender: FDA-Public Use
  Company Number: US-EXELIXIS-CABO-21037634

PATIENT
  Age: 51 Year
  Sex: Female
  Weight: 89.8 kg

DRUGS (41)
  1. ACETAMINOPHEN. [Concomitant]
     Active Substance: ACETAMINOPHEN
     Indication: PAIN
  2. VITAMIN D3 [Concomitant]
     Active Substance: CHOLECALCIFEROL
  3. DICLOFENAC POTASSIUM. [Concomitant]
     Active Substance: DICLOFENAC POTASSIUM
  4. BIOTENE DRY MOUTH ORAL RINSE [Concomitant]
     Active Substance: CETYLPYRIDINIUM CHLORIDE
     Indication: DRY MOUTH
  5. HALOPERIDOL. [Concomitant]
     Active Substance: HALOPERIDOL
     Indication: NAUSEA
  6. LORAZEPAM. [Concomitant]
     Active Substance: LORAZEPAM
     Indication: INSOMNIA
  7. PROCHLORPERAZINE. [Concomitant]
     Active Substance: PROCHLORPERAZINE
  8. CABOMETYX [Suspect]
     Active Substance: CABOZANTINIB S-MALATE
     Indication: RENAL CELL CARCINOMA
     Dosage: 60 MG, QD
     Route: 048
     Dates: start: 20200112, end: 20210225
  9. OXYCODONE HYDROCHLORIDE. [Concomitant]
     Active Substance: OXYCODONE HYDROCHLORIDE
  10. SIMETHICONE (DIMETHICONE) [Concomitant]
     Active Substance: DIMETHICONE
     Indication: FLATULENCE
  11. ALBUTEROL SULFATE HFA [Concomitant]
     Active Substance: ALBUTEROL SULFATE
  12. ACETAMINOPHEN. [Concomitant]
     Active Substance: ACETAMINOPHEN
     Indication: PYREXIA
  13. CALCIUM +D3 [Concomitant]
     Active Substance: CALCIUM\CHOLECALCIFEROL
  14. PREDNISONE. [Concomitant]
     Active Substance: PREDNISONE
  15. AMLODIPINE BESYLATE. [Concomitant]
     Active Substance: AMLODIPINE BESYLATE
  16. XYLIMELTS [Concomitant]
     Active Substance: XYLITOL
     Indication: DRY MOUTH
  17. VENTOLIN [Concomitant]
     Active Substance: ALBUTEROL SULFATE
     Indication: ASTHMA
  18. ONDANSETRON HCL [Concomitant]
     Active Substance: ONDANSETRON HYDROCHLORIDE
     Indication: NAUSEA
  19. FENTANYL. [Concomitant]
     Active Substance: FENTANYL
     Indication: PAIN
  20. HYDROMORPHONE [Concomitant]
     Active Substance: HYDROMORPHONE
  21. COMPAZINE [Concomitant]
     Active Substance: PROCHLORPERAZINE MALEATE
     Indication: VOMITING
  22. DULOXETINE. [Concomitant]
     Active Substance: DULOXETINE
     Indication: NEURALGIA
  23. MORPHINE [Concomitant]
     Active Substance: MORPHINE
     Indication: DYSPNOEA
  24. NALOXONE [Concomitant]
     Active Substance: NALOXONE
  25. MIRALAX [Concomitant]
     Active Substance: POLYETHYLENE GLYCOL 3350
     Indication: CONSTIPATION
  26. FLOVENT HFA [Concomitant]
     Active Substance: FLUTICASONE PROPIONATE
     Indication: ASTHMA
  27. PANTOPRAZOLE SODIUM. [Concomitant]
     Active Substance: PANTOPRAZOLE SODIUM
     Indication: GASTROOESOPHAGEAL REFLUX DISEASE
  28. PROPRANOLOL HCL [Concomitant]
     Active Substance: PROPRANOLOL HYDROCHLORIDE
     Indication: BLOOD PRESSURE MEASUREMENT
  29. METHOCARBAMOL. [Concomitant]
     Active Substance: METHOCARBAMOL
     Indication: MUSCLE SPASMS
  30. MORPHINE [Concomitant]
     Active Substance: MORPHINE
     Indication: PAIN
  31. CABOMETYX [Suspect]
     Active Substance: CABOZANTINIB S-MALATE
     Dosage: 40 MG DAILY FOR 4 DAYS ALTERNATE WITH 20 MG DAILY FOR 3 DAYS
     Route: 048
     Dates: start: 20210311, end: 20210408
  32. GABAPENTIN. [Concomitant]
     Active Substance: GABAPENTIN
     Indication: PAIN
  33. BACLOFEN. [Concomitant]
     Active Substance: BACLOFEN
  34. BISACODYL. [Concomitant]
     Active Substance: BISACODYL
     Indication: CONSTIPATION
  35. COMPAZINE [Concomitant]
     Active Substance: PROCHLORPERAZINE MALEATE
     Indication: NAUSEA
  36. HALOPERIDOL. [Concomitant]
     Active Substance: HALOPERIDOL
     Indication: RESTLESSNESS
  37. MELATONIN [Concomitant]
     Active Substance: MELATONIN
     Indication: INSOMNIA
  38. SENNA S [Concomitant]
     Active Substance: DOCUSATE SODIUM\SENNA LEAF
  39. BUPROPION HCL [Concomitant]
     Active Substance: BUPROPION HYDROCHLORIDE
     Indication: AFFECTIVE DISORDER
  40. DULOXETINE. [Concomitant]
     Active Substance: DULOXETINE
     Indication: ANXIETY
  41. MILK OF MAGNESIA [Concomitant]
     Active Substance: MAGNESIUM HYDROXIDE
     Indication: CONSTIPATION

REACTIONS (7)
  - Malignant neoplasm progression [Fatal]
  - Abdominal pain upper [Unknown]
  - Asthenia [Unknown]
  - Diarrhoea [Unknown]
  - Adrenal insufficiency [Unknown]
  - Decreased appetite [Unknown]
  - Fatigue [Unknown]

NARRATIVE: CASE EVENT DATE: 20210330
